FAERS Safety Report 25777119 (Version 1)
Quarter: 2025Q3

REPORT INFORMATION
  Report Type: Spontaneous
  Country: US (occurrence: US)
  Receive Date: 20250909
  Receipt Date: 20250909
  Transmission Date: 20251020
  Serious: No
  Sender: DOMPE FARMACEUTICI
  Company Number: US-FARMAPROD-202410-3421

PATIENT
  Sex: Female

DRUGS (13)
  1. OXERVATE [Suspect]
     Active Substance: CENEGERMIN-BKBJ
     Indication: Neurotrophic keratopathy
     Route: 047
     Dates: start: 20240925
  2. REFRESH TEARS PF [Concomitant]
     Active Substance: CARBOXYMETHYLCELLULOSE SODIUM\GLYCERIN
  3. SYSTANE ULTRA PF [Concomitant]
  4. DEXAMETHASONE [Concomitant]
     Active Substance: DEXAMETHASONE
  5. NM-6603 [Concomitant]
     Active Substance: NM-6603
  6. CALTRATE-D3 PLUS MINERALS [Concomitant]
  7. SIROLIMUS [Concomitant]
     Active Substance: SIROLIMUS
  8. ICLUSIG [Concomitant]
     Active Substance: PONATINIB HYDROCHLORIDE
  9. ROSUVASTATIN CALCIUM [Concomitant]
     Active Substance: ROSUVASTATIN CALCIUM
  10. BACTRIM [Concomitant]
     Active Substance: SULFAMETHOXAZOLE\TRIMETHOPRIM
  11. ACYCLOVIR [Concomitant]
     Active Substance: ACYCLOVIR
  12. PREDNISOLONE [Concomitant]
     Active Substance: PREDNISOLONE
  13. RESTASIS [Concomitant]
     Active Substance: CYCLOSPORINE

REACTIONS (3)
  - Eye pain [Unknown]
  - Ocular discomfort [Unknown]
  - Photophobia [Unknown]
